FAERS Safety Report 18474114 (Version 1)
Quarter: 2020Q4

REPORT INFORMATION
  Report Type: Spontaneous
  Country: US (occurrence: US)
  Receive Date: 20201106
  Receipt Date: 20201106
  Transmission Date: 20210114
  Serious: No
  Sender: FDA-Public Use
  Company Number: US-PFIZER INC-2016572798

PATIENT
  Age: 70 Year
  Sex: Female

DRUGS (17)
  1. PERCOCET [Concomitant]
     Active Substance: ACETAMINOPHEN\OXYCODONE HYDROCHLORIDE
     Dosage: UNK, 2X/WEEK (5-325, 1/2 TABLET 2 EVENINGS A WEEK)
  2. CALCIUM + MAGNESIUM [Concomitant]
     Active Substance: CALCIUM\MAGNESIUM
     Dosage: 3 DF, DAILY
  3. LYRICA [Suspect]
     Active Substance: PREGABALIN
     Indication: MIGRAINE WITH AURA
     Dosage: 100 MG, 2X/DAY (100 MG AM, 100MG PM)
     Route: 048
     Dates: start: 20161202
  4. TYLENOL EXTRA STRENGTH [Concomitant]
     Active Substance: ACETAMINOPHEN
     Dosage: UNK, DAILY (NO MORE THAN 5 TABS DAILY)
  5. PROGEST [Concomitant]
     Dosage: UNK, AS NEEDED
  6. VITAMIN D [Concomitant]
     Active Substance: VITAMIN D NOS
     Dosage: 1000 IU, 1X/DAY (AM)
  7. MAXALT [Concomitant]
     Active Substance: RIZATRIPTAN BENZOATE
     Dosage: 5 MG, UNK (5 DAYS A WEEK)
  8. CRANBERRY. [Concomitant]
     Active Substance: CRANBERRY
     Dosage: 1 DF, DAILY
  9. LYRICA [Suspect]
     Active Substance: PREGABALIN
     Indication: STATUS MIGRAINOSUS
  10. ATIVAN [Concomitant]
     Active Substance: LORAZEPAM
     Indication: INSOMNIA
     Dosage: 0.25 MG, UNK
  11. VITAMIN B COMPLEX [Concomitant]
     Active Substance: CYANOCOBALAMIN\DEXPANTHENOL\NIACINAMIDE\PYRIDOXINE HYDROCHLORIDE\RIBOFLAVIN 5^-PHOSPHATE SODIUM\THIAMINE HYDROCHLORIDE\VITAMIN B COMPLEX
     Dosage: UNK, 1X/DAY (AM)
  12. ATIVAN [Concomitant]
     Active Substance: LORAZEPAM
     Dosage: 0.5 MG, UNK
  13. MILK OF MAGNESIA [Concomitant]
     Active Substance: MAGNESIUM HYDROXIDE
     Dosage: UNK, 1X/DAY (NIGHTLY)
  14. PROMETHEGAN [Concomitant]
     Active Substance: PROMETHAZINE HYDROCHLORIDE
     Dosage: 25 MG, UNK (1/3 25 MG SUPPOSITORY IN PM)
  15. OMEPRAZOLE. [Concomitant]
     Active Substance: OMEPRAZOLE
     Dosage: UNK (1 TABLET 1/2 BEFORE BREAKFAST)
  16. EXCEDRIN TENSION HEADACHE [Concomitant]
     Active Substance: ACETAMINOPHEN\CAFFEINE
     Dosage: UNK, 2X/DAY (1/2 TABLET TWICE A DAY)
  17. FISH OIL [Concomitant]
     Active Substance: FISH OIL
     Dosage: UNK (OMEGA A-3 NORDIC NATURALS 1 CAP AFTER BREAKFAST)

REACTIONS (4)
  - Throat irritation [Unknown]
  - Product use in unapproved indication [Unknown]
  - Cough [Unknown]
  - Off label use [Unknown]
